FAERS Safety Report 8777433 (Version 2)
Quarter: 2013Q3

REPORT INFORMATION
  Report Type: Report from Study
  Country: DE (occurrence: DE)
  Receive Date: 20120911
  Receipt Date: 20130816
  Transmission Date: 20140515
  Serious: Yes (Hospitalization, Other)
  Sender: FDA-Public Use
  Company Number: DE-CELGENEUS-062-21880-12090058

PATIENT
  Age: 70 Year
  Sex: Male
  Weight: 78 kg

DRUGS (6)
  1. REVLIMID [Suspect]
     Indication: PLASMA CELL MYELOMA
     Dosage: 25 MILLIGRAM
     Route: 048
     Dates: start: 20111021, end: 2012
  2. REVLIMID [Suspect]
     Route: 048
     Dates: start: 20120629, end: 20120727
  3. REVLIMID [Suspect]
     Route: 048
     Dates: start: 20120920
  4. DEXAMETHASONE [Concomitant]
     Indication: PLASMA CELL MYELOMA
     Route: 048
     Dates: start: 20111021, end: 201207
  5. IBANDRONATE [Concomitant]
     Indication: PLASMA CELL MYELOMA
     Dosage: .2 MILLIGRAM
     Route: 048
     Dates: start: 20090730, end: 20120731
  6. ASA [Concomitant]
     Indication: PRODUCT USED FOR UNKNOWN INDICATION
     Dosage: 100 MILLIGRAM
     Route: 048

REACTIONS (1)
  - Renal cancer stage I [Recovered/Resolved with Sequelae]
